FAERS Safety Report 19444336 (Version 1)
Quarter: 2021Q2

REPORT INFORMATION
  Report Type: Spontaneous
  Country: TH (occurrence: TH)
  Receive Date: 20210621
  Receipt Date: 20210621
  Transmission Date: 20210717
  Serious: Yes (Life-Threatening, Other)
  Sender: FDA-Public Use
  Company Number: TH-009507513-2106THA001698

PATIENT
  Age: 41 Year
  Sex: Male
  Weight: 79.85 kg

DRUGS (9)
  1. SEVORANE [Concomitant]
     Active Substance: SEVOFLURANE
     Indication: ANAESTHESIA
     Dates: start: 20210603, end: 20210603
  2. DEXAMETHASONE. [Concomitant]
     Active Substance: DEXAMETHASONE
     Indication: INFLAMMATION
     Dosage: 15 MILLIGRAM
     Route: 042
     Dates: start: 20210603, end: 20210605
  3. TRANSAMINE [Concomitant]
     Active Substance: TRANEXAMIC ACID
     Indication: HAEMORRHAGE
     Dosage: TRANSAMINE 500 MG IV (TOTAL DOSE 500 MG)
     Route: 042
     Dates: start: 20210603, end: 20210603
  4. PROPOFOL. [Concomitant]
     Active Substance: PROPOFOL
     Indication: ANAESTHESIA
     Dosage: PROPOFOL 200 MG IV TOTAL DOSE 200 MG
     Route: 042
     Dates: start: 20210603, end: 20210603
  5. FENTANYL. [Concomitant]
     Active Substance: FENTANYL
     Dosage: FENTANYL 50 MICROGRAM IV (TOTAL DOSAGE 250?300 MICROGRAM)
     Route: 042
     Dates: start: 20210603, end: 20210604
  6. ESMERON [Concomitant]
     Active Substance: ROCURONIUM BROMIDE
     Dosage: 120 MILLIGRAM
     Route: 042
     Dates: start: 20210603, end: 20210603
  7. AUGMENTIN FP [Concomitant]
     Indication: ANTIBIOTIC THERAPY
     Dosage: AUGMENTIN 2 GRAMS IV (TOTAL DOSE 2 GRAMS)
     Route: 042
     Dates: start: 20210603, end: 20210603
  8. NITRODERM [Concomitant]
     Active Substance: NITROGLYCERIN
     Indication: BLOOD PRESSURE DECREASED
     Dosage: 10 MILLIGRAM
     Route: 062
     Dates: start: 20210603, end: 20210603
  9. BRIDION [Suspect]
     Active Substance: SUGAMMADEX
     Indication: NEUROMUSCULAR BLOCKADE REVERSAL
     Dosage: UNK UNK, ONCE
     Route: 042
     Dates: start: 20210603, end: 20210603

REACTIONS (3)
  - Blood pressure decreased [Recovered/Resolved]
  - Angioedema [Recovered/Resolved]
  - Bronchospasm [Recovered/Resolved]

NARRATIVE: CASE EVENT DATE: 20210603
